FAERS Safety Report 5786139-7 (Version None)
Quarter: 2008Q2

REPORT INFORMATION
  Report Type: 
  Country: None (occurrence: None)
  Receive Date: 20080624
  Receipt Date: 20080623
  Transmission Date: 20081010
  Serious: Yes (Other)
  Sender: FDA-Public Use
  Company Number: A0734277A

PATIENT
  Age: 53 Year
  Sex: Female
  Weight: 62.7 kg

DRUGS (4)
  1. ALLI [Suspect]
     Indication: WEIGHT LOSS DIET
     Route: 048
     Dates: start: 20080606
  2. ALLEGRA [Concomitant]
  3. SYNTHROID [Concomitant]
  4. EFFEXOR XR [Concomitant]

REACTIONS (4)
  - FAECES PALE [None]
  - HAEMATOCHEZIA [None]
  - RECTAL HAEMORRHAGE [None]
  - STEATORRHOEA [None]
